FAERS Safety Report 10058461 (Version 2)
Quarter: 2014Q2

REPORT INFORMATION
  Report Type: Spontaneous
  Country: IT (occurrence: IT)
  Receive Date: 20140404
  Receipt Date: 20140404
  Transmission Date: 20141212
  Serious: Yes (Other)
  Sender: FDA-Public Use
  Company Number: IT-RANBAXY-2014RR-79406

PATIENT
  Age: 22 Year
  Sex: Male

DRUGS (3)
  1. OLANZAPINE [Suspect]
     Indication: IMPULSIVE BEHAVIOUR
     Dosage: 15 MG, DAILY
     Route: 065
  2. OLANZAPINE [Suspect]
     Indication: CONDITION AGGRAVATED
  3. TOPIRAMATE [Suspect]
     Indication: PRODUCT USED FOR UNKNOWN INDICATION
     Dosage: 300 MG, DAILY
     Route: 065

REACTIONS (1)
  - Priapism [Recovered/Resolved with Sequelae]
